FAERS Safety Report 9371567 (Version 1)
Quarter: 2013Q2

REPORT INFORMATION
  Report Type: Spontaneous
  Country: TR (occurrence: TR)
  Receive Date: 20130627
  Receipt Date: 20130627
  Transmission Date: 20140414
  Serious: Yes (Hospitalization, Other)
  Sender: FDA-Public Use
  Company Number: TR-RANBAXY-2013R1-70659

PATIENT
  Age: 49 Year
  Sex: Female

DRUGS (1)
  1. ISOTRETINOIN [Suspect]
     Indication: ICHTHYOSIS
     Dosage: UNK
     Route: 065

REACTIONS (2)
  - Spinal column stenosis [Unknown]
  - Exostosis [Unknown]
